FAERS Safety Report 9508491 (Version 1)
Quarter: 2013Q1

REPORT INFORMATION
  Report Type: Spontaneous
  Country: US (occurrence: None)
  Receive Date: 20130305
  Receipt Date: 20130305
  Transmission Date: 20140127
  Serious: Yes (Other)
  Sender: FDA-Public Use
  Company Number: 163-21880-12083437

PATIENT
  Age: 74 Year
  Sex: Female

DRUGS (5)
  1. REVLIMID (LENALIDOMIDE) (15 MILLIGRAM, CAPSULES) [Suspect]
     Indication: PLASMA CELL MYELOMA
     Dosage: CAPSULE, 15 MG, 21 IN 21 D, PO
     Dates: start: 20111210
  2. ENOXAPARIN [Concomitant]
  3. DEXAMETHASONE [Concomitant]
  4. ZOMETA (ZOLEDRONIC ACID) [Concomitant]
  5. VELCADE (BORTEZOMIB) [Concomitant]

REACTIONS (2)
  - Angiopathy [None]
  - Increased tendency to bruise [None]
